FAERS Safety Report 4431273-7 (Version None)
Quarter: 2004Q3

REPORT INFORMATION
  Report Type: 
  Country: None (occurrence: None)
  Receive Date: 20040818
  Receipt Date: 20040803
  Transmission Date: 20050211
  Serious: Yes (Hospitalization)
  Sender: FDA-Public Use
  Company Number: B0341219A

PATIENT
  Age: 75 Year
  Sex: Female

DRUGS (1)
  1. LITHIUM SALT (FORMULATION UNKNOWN) (LITHIUM SALT) (GENERIC) [Suspect]
     Indication: BIPOLAR DISORDER

REACTIONS (12)
  - BAND NEUTROPHIL COUNT INCREASED [None]
  - BLOOD SODIUM INCREASED [None]
  - BLOOD UREA INCREASED [None]
  - CHAPPED LIPS [None]
  - COMA [None]
  - DEHYDRATION [None]
  - GASTROENTERITIS NORWALK VIRUS [None]
  - LETHARGY [None]
  - LIP DRY [None]
  - LIVER FUNCTION TEST ABNORMAL [None]
  - NEUTROPHIL COUNT ABNORMAL [None]
  - THERAPEUTIC AGENT TOXICITY [None]
